FAERS Safety Report 13798543 (Version 1)
Quarter: 2017Q3

REPORT INFORMATION
  Report Type: Spontaneous
  Country: QA (occurrence: QA)
  Receive Date: 20170727
  Receipt Date: 20170727
  Transmission Date: 20171127
  Serious: Yes (Death, Other)
  Sender: FDA-Public Use
  Company Number: QA-009507513-1707QAT007108

PATIENT

DRUGS (2)
  1. PEGINTERFERON ALFA-2B [Suspect]
     Active Substance: PEGINTERFERON ALFA-2B
     Indication: CHRONIC HEPATITIS C
     Dosage: UNK
  2. RIBAVIRIN. [Suspect]
     Active Substance: RIBAVIRIN
     Indication: CHRONIC HEPATITIS C
     Dosage: UNK
     Route: 048

REACTIONS (13)
  - Hepatocellular carcinoma [Fatal]
  - Gastric varices haemorrhage [Unknown]
  - Ascites [Unknown]
  - Hepatitis C [Unknown]
  - Hepatorenal syndrome [Unknown]
  - Hepatic encephalopathy [Unknown]
  - Chronic hepatic failure [Fatal]
  - Varices oesophageal [Unknown]
  - Jaundice [Unknown]
  - Gastric varices [Unknown]
  - Hepatocellular carcinoma [Unknown]
  - Peritonitis bacterial [Unknown]
  - Therapy non-responder [Unknown]
